FAERS Safety Report 15695683 (Version 2)
Quarter: 2018Q4

REPORT INFORMATION
  Report Type: Spontaneous
  Country: JP (occurrence: JP)
  Receive Date: 20181206
  Receipt Date: 20181231
  Transmission Date: 20190205
  Serious: Yes (Hospitalization)
  Sender: FDA-Public Use
  Company Number: JP-BAYER-2018-219670

PATIENT
  Age: 75 Year
  Sex: Male
  Weight: 73.7 kg

DRUGS (8)
  1. TAKECAB [Concomitant]
     Active Substance: VONOPRAZAN FUMURATE
     Dosage: DAILY DOSE 20 MG
     Route: 048
     Dates: start: 20171113
  2. FUROSEMIDE. [Concomitant]
     Active Substance: FUROSEMIDE
     Dosage: DAILY DOSE 20 MG
     Route: 048
     Dates: start: 20181106
  3. AMINOLEBAN [Concomitant]
     Active Substance: AMINO ACIDS
     Dosage: DAILY DOSE 200 G
     Route: 048
     Dates: start: 20180927
  4. STIVARGA [Suspect]
     Active Substance: REGORAFENIB
     Indication: HEPATOCELLULAR CARCINOMA
     Dosage: 120 MG, A 3-WEEK CONTINUOUS ADMINISTRATION PERIOD FOLLOWED BY A 1-WEEK INTERRUPTION PERIOD
     Route: 048
     Dates: start: 20181006, end: 20181116
  5. NEXAVAR [Suspect]
     Active Substance: SORAFENIB
     Indication: HEPATOCELLULAR CARCINOMA
     Dosage: DAILY DOSE 600 MG
     Route: 048
     Dates: start: 20180330, end: 20181002
  6. MAGMITT [Concomitant]
     Active Substance: MAGNESIUM OXIDE
     Dosage: DAILY DOSE 990 MG
     Route: 048
     Dates: start: 20171113
  7. SAMSCA [Concomitant]
     Active Substance: TOLVAPTAN
     Dosage: DAILY DOSE 7.5 MG
     Route: 048
     Dates: start: 20181116
  8. BAYASPIRIN 100 MG [Concomitant]
     Active Substance: ASPIRIN
     Dosage: DAILY DOSE 100 MG
     Route: 048
     Dates: start: 20171113

REACTIONS (4)
  - Urine output decreased [Recovering/Resolving]
  - Drug ineffective [None]
  - Weight increased [Recovering/Resolving]
  - Nephrotic syndrome [Recovering/Resolving]

NARRATIVE: CASE EVENT DATE: 20181116
